FAERS Safety Report 14859541 (Version 2)
Quarter: 2018Q3

REPORT INFORMATION
  Report Type: Spontaneous
  Country: US (occurrence: US)
  Receive Date: 20180508
  Receipt Date: 20180806
  Transmission Date: 20181010
  Serious: No
  Sender: FDA-Public Use
  Company Number: US-PFIZER INC-2017483691

PATIENT
  Age: 55 Year
  Sex: Female
  Weight: 119 kg

DRUGS (3)
  1. PARAPLATIN [Concomitant]
     Active Substance: CARBOPLATIN
     Indication: CHEMOTHERAPY
     Dosage: UNK
  2. DOCETAXEL. [Suspect]
     Active Substance: DOCETAXEL
     Indication: BREAST CANCER FEMALE
     Dosage: 165 MG, CYCLIC (56.25 MG/M2 EVERY THREE WEEKS; NUMBER OF CYCLES: 17)
     Dates: start: 20120326, end: 20130614
  3. TAXOTERE [Suspect]
     Active Substance: DOCETAXEL
     Indication: BREAST CANCER FEMALE
     Dosage: 165 MG, CYCLIC (56.25 MG/M2 EVERY THREE WEEKS; NUMBER OF CYCLES: 17)
     Dates: start: 20120326, end: 20130614

REACTIONS (2)
  - Alopecia [Not Recovered/Not Resolved]
  - Madarosis [Not Recovered/Not Resolved]
